FAERS Safety Report 4958161-1 (Version None)
Quarter: 2006Q1

REPORT INFORMATION
  Report Type: 
  Country: None (occurrence: None)
  Receive Date: 20060330
  Receipt Date: 20060320
  Transmission Date: 20060701
  Serious: Yes (Other)
  Sender: FDA-Public Use
  Company Number: US-JNJFOC-20060305258

PATIENT
  Sex: Male
  Weight: 68.04 kg

DRUGS (3)
  1. TOPAMAX [Suspect]
     Indication: PAIN
     Route: 048
  2. ATENOLOL [Concomitant]
  3. FOSAMAX [Concomitant]
     Indication: OSTEOPOROSIS

REACTIONS (3)
  - CATARACT [None]
  - OPTIC NERVE DISORDER [None]
  - PHOTOPHOBIA [None]
